FAERS Safety Report 8337599-9 (Version None)
Quarter: 2012Q2

REPORT INFORMATION
  Report Type: 
  Country: None (occurrence: None)
  Receive Date: 20120504
  Receipt Date: 20120426
  Transmission Date: 20120825
  Serious: Yes (Hospitalization)
  Sender: FDA-Public Use
  Company Number: BR-ASTRAZENECA-2012SE27694

PATIENT
  Age: 62 Year
  Sex: Female
  Weight: 77 kg

DRUGS (2)
  1. BEROTEC [Concomitant]
     Indication: ASTHMA
     Dosage: PRN
     Route: 055
  2. SYMBICORT [Suspect]
     Indication: ASTHMA
     Dosage: 320/9 MCG TWO TIME A DAY
     Route: 055
     Dates: start: 20090101

REACTIONS (1)
  - PNEUMONIA [None]
